FAERS Safety Report 4488941-0 (Version None)
Quarter: 2004Q4

REPORT INFORMATION
  Report Type: 
  Country: None (occurrence: None)
  Receive Date: 20041029
  Receipt Date: 20041022
  Transmission Date: 20050328
  Serious: Yes (Life-Threatening)
  Sender: FDA-Public Use
  Company Number: JP-BRISTOL-MYERS SQUIBB COMPANY-12741971

PATIENT
  Age: 22 Year
  Sex: Male

DRUGS (5)
  1. REYATAZ [Suspect]
     Indication: HIV INFECTION
     Route: 048
     Dates: start: 20040219, end: 20040221
  2. STOCRIN TABS 600 MG [Suspect]
     Indication: HIV INFECTION
     Route: 048
     Dates: start: 20040213, end: 20040222
  3. KALETRA [Suspect]
     Indication: HIV INFECTION
     Dosage: 22-FEB-04: DOSE REDUCED TO 6 CAPSULES/DAY.
     Route: 048
     Dates: start: 20040213, end: 20040302
  4. VIREAD [Suspect]
     Indication: HIV INFECTION
     Route: 048
     Dates: start: 20040213, end: 20040302
  5. EPIVIR [Concomitant]
     Route: 048
     Dates: end: 20040312

REACTIONS (3)
  - BRADYCARDIA [None]
  - PYREXIA [None]
  - RASH [None]
